FAERS Safety Report 25407926 (Version 2)
Quarter: 2025Q2

REPORT INFORMATION
  Report Type: Spontaneous
  Country: ES (occurrence: ES)
  Receive Date: 20250606
  Receipt Date: 20250616
  Transmission Date: 20250716
  Serious: No
  Sender: PFIZER
  Company Number: ES-PFIZER INC-PV202500066871

PATIENT
  Age: 75 Year
  Sex: Male

DRUGS (8)
  1. METHYLPREDNISOLONE SODIUM SUCCINATE [Suspect]
     Active Substance: METHYLPREDNISOLONE SODIUM SUCCINATE
     Indication: Myocarditis-myositis-myasthenia gravis overlap syndrome
     Dosage: 1 G, DAILY (HIGH DOSE-FOR 5 DAYS)
     Route: 042
  2. METHYLPREDNISOLONE SODIUM SUCCINATE [Suspect]
     Active Substance: METHYLPREDNISOLONE SODIUM SUCCINATE
     Dosage: 1 MG/KG, DAILY
  3. ALEUDRIN [Concomitant]
  4. DEXAMETHASONE [Concomitant]
     Active Substance: DEXAMETHASONE
     Dosage: 4 MG, 3X/DAY (EVERY 8 HOURS)
  5. PYRIDOSTIGMINE [Concomitant]
     Active Substance: PYRIDOSTIGMINE
     Indication: Myocarditis-myositis-myasthenia gravis overlap syndrome
     Dosage: 60 MG, 3X/DAY (EVERY 8 HOURS)
  6. IMMUNE GLOBULIN NOS [Concomitant]
     Active Substance: IMMUNE GLOBULIN NOS
     Indication: Myocarditis-myositis-myasthenia gravis overlap syndrome
     Route: 042
  7. TOCILIZUMAB [Concomitant]
     Active Substance: TOCILIZUMAB
     Route: 042
  8. PLASMA-PLEX [Concomitant]
     Active Substance: PLASMA PROTEIN FRACTION (HUMAN)

REACTIONS (1)
  - Off label use [Unknown]
